FAERS Safety Report 12701731 (Version 1)
Quarter: 2016Q3

REPORT INFORMATION
  Report Type: Spontaneous
  Country: US (occurrence: US)
  Receive Date: 20160831
  Receipt Date: 20160831
  Transmission Date: 20161109
  Serious: No
  Sender: FDA-Public Use
  Company Number: US-JAZZ-2016-US-007409

PATIENT
  Sex: Female

DRUGS (29)
  1. MONTELUKAST SODIUM. [Concomitant]
     Active Substance: MONTELUKAST SODIUM
  2. ALLOPURINOL. [Concomitant]
     Active Substance: ALLOPURINOL
  3. CYMBALTA [Concomitant]
     Active Substance: DULOXETINE HYDROCHLORIDE
  4. AMANTADINE [Concomitant]
     Active Substance: AMANTADINE
  5. METHOCARBAMOL. [Concomitant]
     Active Substance: METHOCARBAMOL
  6. SENOKOT [Concomitant]
     Active Substance: SENNOSIDES
  7. SONATA [Concomitant]
     Active Substance: ZALEPLON
  8. ATENOLOL/HCTZ [Concomitant]
     Active Substance: ATENOLOL
  9. ATENOLOL. [Concomitant]
     Active Substance: ATENOLOL
  10. LYRICA [Concomitant]
     Active Substance: PREGABALIN
  11. XYREM [Suspect]
     Active Substance: SODIUM OXYBATE
     Dosage: DOSE ADJUSTMENTS
     Route: 048
  12. XYREM [Suspect]
     Active Substance: SODIUM OXYBATE
     Dosage: 3.25 G, SECOND DOSE
     Route: 048
     Dates: start: 201601
  13. ALDACTONE [Concomitant]
     Active Substance: SPIRONOLACTONE
  14. FENTANYL. [Concomitant]
     Active Substance: FENTANYL
  15. SOMA [Concomitant]
     Active Substance: CARISOPRODOL
  16. XYREM [Suspect]
     Active Substance: SODIUM OXYBATE
     Dosage: 4.5 G, FIRST DOSE
     Route: 048
     Dates: start: 201601
  17. PLAQUENIL [Concomitant]
     Active Substance: HYDROXYCHLOROQUINE SULFATE
  18. ZETIA [Concomitant]
     Active Substance: EZETIMIBE
  19. XYREM [Suspect]
     Active Substance: SODIUM OXYBATE
     Indication: HYPERSOMNIA
     Dosage: 2.25 G, BID
     Route: 048
     Dates: start: 200902, end: 200903
  20. ADDERALL [Concomitant]
     Active Substance: AMPHETAMINE ASPARTATE\AMPHETAMINE SULFATE\DEXTROAMPHETAMINE SACCHARATE\DEXTROAMPHETAMINE SULFATE
  21. HYDROCODONE/ACETAMINOPHEN [Concomitant]
     Active Substance: ACETAMINOPHEN\HYDROCODONE
  22. LASIX [Concomitant]
     Active Substance: FUROSEMIDE
  23. LEVOTHYROXINE. [Concomitant]
     Active Substance: LEVOTHYROXINE
  24. PREDNISONE. [Concomitant]
     Active Substance: PREDNISONE
  25. PROVIGIL [Concomitant]
     Active Substance: MODAFINIL
  26. FLONASE [Concomitant]
     Active Substance: FLUTICASONE PROPIONATE
  27. DARVOCET [Concomitant]
     Active Substance: ACETAMINOPHEN\PROPOXYPHENE HYDROCHLORIDE
  28. FLUOROMETHOLONE. [Concomitant]
     Active Substance: FLUOROMETHOLONE
  29. LOVASTATIN. [Concomitant]
     Active Substance: LOVASTATIN

REACTIONS (1)
  - Spinal disorder [Not Recovered/Not Resolved]
